FAERS Safety Report 15223495 (Version 1)
Quarter: 2018Q3

REPORT INFORMATION
  Report Type: Spontaneous
  Country: US (occurrence: US)
  Receive Date: 20180731
  Receipt Date: 20180731
  Transmission Date: 20181010
  Serious: No
  Sender: FDA-Public Use
  Company Number: US-ENDO PHARMACEUTICALS INC-2018-026583

PATIENT
  Age: 46 Year
  Sex: Female

DRUGS (1)
  1. TESTOPEL [Suspect]
     Active Substance: TESTOSTERONE
     Indication: PRODUCT USED FOR UNKNOWN INDICATION
     Dosage: 1 PELLET, UNKNOWN
     Route: 065
     Dates: start: 201710, end: 2018

REACTIONS (4)
  - Oestrone increased [Unknown]
  - Off label use [Recovered/Resolved]
  - Oestradiol increased [Unknown]
  - Blood testosterone decreased [Unknown]

NARRATIVE: CASE EVENT DATE: 201710
